FAERS Safety Report 14506436 (Version 1)
Quarter: 2018Q1

REPORT INFORMATION
  Report Type: Spontaneous
  Country: US (occurrence: US)
  Receive Date: 20180208
  Receipt Date: 20180208
  Transmission Date: 20180509
  Serious: Yes (Hospitalization)
  Sender: FDA-Public Use
  Company Number: US-TEVA-2018-US-855794

PATIENT
  Age: 75 Year
  Sex: Male

DRUGS (9)
  1. LIDOCAINE. [Interacting]
     Active Substance: LIDOCAINE
     Indication: ANALGESIC THERAPY
     Dosage: THREE TIMES A DAY
     Route: 061
  2. CLONIDINE. [Suspect]
     Active Substance: CLONIDINE
     Indication: ANALGESIC THERAPY
     Dosage: THREE TIMES A DAY
     Route: 061
  3. ACETAMINOPHEN AND CODEINE [Interacting]
     Active Substance: ACETAMINOPHEN\CODEINE PHOSPHATE
     Indication: PAIN
     Dosage: PARACETAMOL 300MG/CODEINE 30MG, EVERY 4 HOURS AS NEEDED
     Route: 065
  4. IMIPRAMINE [Interacting]
     Active Substance: IMIPRAMINE
     Indication: ANALGESIC THERAPY
     Dosage: THREE TIMES A DAY
     Route: 061
  5. TELMISARTAN. [Interacting]
     Active Substance: TELMISARTAN
     Indication: PRODUCT USED FOR UNKNOWN INDICATION
     Dosage: 40MG DAILY
     Route: 065
  6. GABAPENTIN. [Interacting]
     Active Substance: GABAPENTIN
     Indication: ANALGESIC THERAPY
     Dosage: THREE TIMES A DAY
     Route: 061
  7. PRAVASTATIN. [Interacting]
     Active Substance: PRAVASTATIN
     Indication: PRODUCT USED FOR UNKNOWN INDICATION
     Dosage: NIGHTLY
     Route: 065
  8. KETAMINE [Interacting]
     Active Substance: KETAMINE
     Indication: ANALGESIC THERAPY
     Dosage: THREE TIMES A DAY
     Route: 061
  9. MEFENAMIC ACID. [Interacting]
     Active Substance: MEFENAMIC ACID
     Indication: ANALGESIC THERAPY
     Dosage: THREE TIMES A DAY
     Route: 061

REACTIONS (3)
  - Mental status changes [Recovered/Resolved]
  - Delirium [Recovered/Resolved]
  - Drug interaction [Recovered/Resolved]
